FAERS Safety Report 5886053-2 (Version None)
Quarter: 2008Q3

REPORT INFORMATION
  Report Type: 
  Country: None (occurrence: None)
  Receive Date: 20080917
  Receipt Date: 20080725
  Transmission Date: 20090109
  Serious: No
  Sender: FDA-Public Use
  Company Number: US-BAYER-200829932NA

PATIENT
  Age: 18 Year
  Sex: Female

DRUGS (1)
  1. YAZ [Suspect]
     Indication: MENSTRUATION IRREGULAR
     Route: 048
     Dates: start: 20080501

REACTIONS (5)
  - AFFECT LABILITY [None]
  - FATIGUE [None]
  - MALAISE [None]
  - METRORRHAGIA [None]
  - NO ADVERSE EVENT [None]
